FAERS Safety Report 18748625 (Version 3)
Quarter: 2022Q2

REPORT INFORMATION
  Report Type: Spontaneous
  Country: US (occurrence: US)
  Receive Date: 20210115
  Receipt Date: 20220503
  Transmission Date: 20220721
  Serious: No
  Sender: FDA-Public Use
  Company Number: US-PFIZER INC-2021025181

PATIENT
  Age: 64 Year
  Sex: Female

DRUGS (3)
  1. XELJANZ XR [Suspect]
     Active Substance: TOFACITINIB CITRATE
     Indication: Rheumatoid arthritis
     Dosage: 11 MG, 1X/DAY (ONCE A DAY, DAILY, ONCE DAILY)
     Route: 048
     Dates: start: 20201030, end: 20220111
  2. METHOTREXATE [Concomitant]
     Active Substance: METHOTREXATE
     Dosage: 8 DF (8 TABLETS EVERY 7 DAYS)
     Dates: end: 20220105
  3. METHOTREXATE [Concomitant]
     Active Substance: METHOTREXATE
     Dosage: 8 DF (8 TABLETS EVERY 7 DAYS)
     Dates: start: 20220120

REACTIONS (8)
  - Product dose omission issue [Unknown]
  - Depression [Unknown]
  - Mood altered [Unknown]
  - Pre-existing condition improved [Unknown]
  - Depressed mood [Unknown]
  - Memory impairment [Unknown]
  - COVID-19 [Unknown]
  - Inappropriate schedule of product administration [Unknown]
